FAERS Safety Report 5497290-3 (Version None)
Quarter: 2007Q4

REPORT INFORMATION
  Report Type: 
  Country: None (occurrence: None)
  Receive Date: 20071025
  Receipt Date: 20071015
  Transmission Date: 20080405
  Serious: Yes (Hospitalization)
  Sender: FDA-Public Use
  Company Number: DE-AMGEN-US243024

PATIENT
  Sex: Male

DRUGS (3)
  1. ENBREL [Suspect]
     Indication: PSORIATIC ARTHROPATHY
     Route: 058
     Dates: start: 20070201, end: 20070701
  2. DECORTIN-H [Suspect]
     Route: 048
  3. CYCLOSPORINE [Suspect]
     Dosage: 2 TIMES 100 MG
     Route: 065
     Dates: start: 20070201, end: 20070701

REACTIONS (6)
  - ANXIETY [None]
  - COGNITIVE DISORDER [None]
  - HALLUCINATION [None]
  - MULTIPLE SCLEROSIS [None]
  - PARANOIA [None]
  - RESTLESSNESS [None]
